FAERS Safety Report 15376702 (Version 1)
Quarter: 2018Q3

REPORT INFORMATION
  Report Type: Spontaneous
  Country: AR (occurrence: AR)
  Receive Date: 20180913
  Receipt Date: 20180913
  Transmission Date: 20181010
  Serious: Yes (Other)
  Sender: FDA-Public Use
  Company Number: AR-AMGEN-ARGSP2017152440

PATIENT
  Age: 57 Year
  Sex: Male

DRUGS (1)
  1. ENBREL [Suspect]
     Active Substance: ETANERCEPT
     Indication: PSORIATIC ARTHROPATHY
     Dosage: 50 MG, UNK (EVERY 15 DAYS)
     Route: 065
     Dates: start: 20051101, end: 201709

REACTIONS (2)
  - Product use issue [Unknown]
  - Eye disorder [Unknown]

NARRATIVE: CASE EVENT DATE: 20051101
